FAERS Safety Report 8670149 (Version 2)
Quarter: 2013Q4

REPORT INFORMATION
  Report Type: Report from Study
  Country: ZA (occurrence: ZA)
  Receive Date: 20120718
  Receipt Date: 20131119
  Transmission Date: 20140711
  Serious: Yes (Death, Hospitalization)
  Sender: FDA-Public Use
  Company Number: ZA-ROCHE-1088561

PATIENT
  Age: 51 Year
  Sex: Male

DRUGS (2)
  1. MIRCERA [Suspect]
     Indication: NEPHROGENIC ANAEMIA
     Route: 058
     Dates: start: 20091009
  2. RECORMON [Concomitant]
     Route: 058

REACTIONS (2)
  - Sepsis [Unknown]
  - Death [Fatal]
